FAERS Safety Report 4602180-1 (Version None)
Quarter: 2005Q2

REPORT INFORMATION
  Report Type: 
  Country: None (occurrence: None)
  Receive Date: 20050215
  Receipt Date: 20040925
  Transmission Date: 20051028
  Serious: Yes (Other)
  Sender: FDA-Public Use
  Company Number: MC200400623

PATIENT
  Sex: Female

DRUGS (1)
  1. ANGIOMAX [Suspect]
     Indication: AORTIC SURGERY
     Dosage: 1 MG/KG, BOLUS, IV BOLUS; 2.5MG/KG/HR, INTRAVENOUS; 0.5 MG/KG
     Route: 040

REACTIONS (1)
  - HAEMORRHAGE [None]
